FAERS Safety Report 16938445 (Version 1)
Quarter: 2019Q4

REPORT INFORMATION
  Report Type: Report from Study
  Country: JP (occurrence: JP)
  Receive Date: 20191019
  Receipt Date: 20191019
  Transmission Date: 20200122
  Serious: Yes (Death, Life-Threatening)
  Sender: FDA-Public Use
  Company Number: PHHO2018JP008318

PATIENT
  Age: 64 Year
  Sex: Male
  Weight: 55.3 kg

DRUGS (83)
  1. ACETAMINOPHEN. [Concomitant]
     Active Substance: ACETAMINOPHEN
     Indication: BACK PAIN
     Dosage: UNK
     Route: 065
     Dates: start: 20180629, end: 20180629
  2. ACETAMINOPHEN. [Concomitant]
     Active Substance: ACETAMINOPHEN
     Indication: PYREXIA
     Dosage: UNK
     Route: 065
     Dates: start: 20180714, end: 20180714
  3. PREDNISOLONE SODIUM SUCCINATE [Concomitant]
     Active Substance: PREDNISOLONE SODIUM SUCCINATE
     Indication: PYREXIA
     Dosage: UNK
     Route: 065
     Dates: start: 20180630, end: 20180701
  4. PANTHENOL [Concomitant]
     Active Substance: PANTHENOL
     Indication: GASTROINTESTINAL MOTILITY DISORDER
     Dosage: UNK
     Route: 065
     Dates: start: 20180719
  5. POTASSIUM CHLORIDE. [Concomitant]
     Active Substance: POTASSIUM CHLORIDE
     Indication: HYPOKALAEMIA
     Route: 065
     Dates: start: 20180715, end: 20180717
  6. GRANISETRON HYDROCHLORIDE. [Concomitant]
     Active Substance: GRANISETRON HYDROCHLORIDE
     Indication: PROPHYLAXIS OF NAUSEA AND VOMITING
     Dosage: UNK
     Route: 065
     Dates: start: 20180628, end: 20180701
  7. DEXCHLORPHENIRAMINE MALEATE. [Concomitant]
     Active Substance: DEXCHLORPHENIRAMINE MALEATE
     Dosage: UNK
     Route: 065
     Dates: start: 20180712, end: 20180713
  8. DIGOXIN. [Concomitant]
     Active Substance: DIGOXIN
     Indication: CARDIAC FAILURE ACUTE
     Dosage: UNK
     Route: 065
     Dates: start: 20180715, end: 20180716
  9. HYDROCORTISONE BUTYRATE. [Concomitant]
     Active Substance: HYDROCORTISONE BUTYRATE
     Indication: PSORIASIS
     Dosage: UNK
     Route: 065
     Dates: start: 20180401
  10. MIDAZOLAM [Concomitant]
     Active Substance: MIDAZOLAM HYDROCHLORIDE
     Dosage: UNK
     Route: 065
  11. HYDROXYZINE [Concomitant]
     Active Substance: HYDROXYZINE HYDROCHLORIDE
     Indication: DELIRIUM
     Dosage: UNK
     Route: 065
     Dates: start: 20180715, end: 20180715
  12. ZOSYN [Concomitant]
     Active Substance: PIPERACILLIN SODIUM\TAZOBACTAM SODIUM
     Indication: PNEUMONIA
     Dosage: UNK
     Route: 065
     Dates: start: 20180723
  13. LANSOPRAZOLE. [Concomitant]
     Active Substance: LANSOPRAZOLE
     Indication: PROPHYLAXIS AGAINST GASTROINTESTINAL ULCER
     Dosage: UNK
     Route: 065
     Dates: start: 20180719, end: 20180720
  14. VERAPAMIL HYDROCHLORIDE. [Concomitant]
     Active Substance: VERAPAMIL HYDROCHLORIDE
     Indication: SUPRAVENTRICULAR TACHYCARDIA
     Dosage: UNK
     Route: 065
     Dates: start: 20180711, end: 20180711
  15. AMOXICILLIN HYDRATE [Concomitant]
     Active Substance: AMOXICILLIN
     Indication: PROPHYLAXIS
     Dosage: UNK
     Route: 065
     Dates: start: 20180620, end: 20180623
  16. GENTAMICIN SULFATE. [Concomitant]
     Active Substance: GENTAMICIN SULFATE
     Indication: CELLULITIS
     Dosage: UNK
     Route: 065
     Dates: start: 20180712
  17. SOLDEM 3A [Concomitant]
     Active Substance: CARBOHYDRATES\POTASSIUM CHLORIDE\SODIUM CHLORIDE\SODIUM LACTATE
     Indication: SURGERY
     Dosage: UNK
     Route: 065
     Dates: start: 20180720, end: 20180720
  18. DEXCHLORPHENIRAMINE MALEATE. [Concomitant]
     Active Substance: DEXCHLORPHENIRAMINE MALEATE
     Dosage: UNK
     Route: 065
     Dates: start: 20180715
  19. HYDROCORTISONE SODIUM SUCCINATE [Concomitant]
     Active Substance: HYDROCORTISONE SODIUM SUCCINATE
     Dosage: UNK
     Route: 065
     Dates: start: 20180714, end: 20180716
  20. VANCOMYCIN HYDROCHLORIDE. [Concomitant]
     Active Substance: VANCOMYCIN HYDROCHLORIDE
     Indication: DEVICE RELATED INFECTION
     Route: 065
     Dates: start: 20180712, end: 20180718
  21. OLOPATADINE. [Concomitant]
     Active Substance: OLOPATADINE
     Indication: PSORIASIS
     Dosage: UNK
     Route: 065
     Dates: start: 20180120
  22. NORADRENALINE [Concomitant]
     Active Substance: NOREPINEPHRINE
     Indication: CARDIAC FAILURE ACUTE
     Dosage: UNK
     Route: 065
     Dates: start: 20180713
  23. DEXAMETHASONE SODIUM PHOSPHATE. [Concomitant]
     Active Substance: DEXAMETHASONE SODIUM PHOSPHATE
     Indication: FULL BLOOD COUNT INCREASED
  24. CHLORPROMAZINE HYDROCHLORIDE. [Concomitant]
     Active Substance: CHLORPROMAZINE HYDROCHLORIDE
     Indication: SEDATION
     Dosage: UNK
     Route: 065
     Dates: start: 20180715, end: 20180715
  25. INSULIN HUMAN [Concomitant]
     Active Substance: INSULIN HUMAN
     Indication: PROPHYLAXIS
     Dosage: UNK
     Route: 065
     Dates: start: 20180720
  26. CALCIUM GLUCONATE. [Concomitant]
     Active Substance: CALCIUM GLUCONATE
     Indication: HYPOCALCAEMIA
     Dosage: UNK
     Route: 065
     Dates: start: 20180723
  27. SOLYUGEN F [Concomitant]
     Active Substance: CALCIUM CHLORIDE\POTASSIUM CHLORIDE\SODIUM ACETATE\SODIUM CHLORIDE
     Indication: FLUID REPLACEMENT
     Dosage: UNK
     Route: 065
     Dates: start: 20180712, end: 20180714
  28. VITAMIN B COMPLEX [Concomitant]
     Active Substance: CYANOCOBALAMIN\DEXPANTHENOL\NIACINAMIDE\PYRIDOXINE HYDROCHLORIDE\RIBOFLAVIN 5^-PHOSPHATE SODIUM\THIAMINE HYDROCHLORIDE\VITAMIN B COMPLEX
     Indication: VITAMIN SUPPLEMENTATION
     Dosage: UNK
     Route: 065
     Dates: start: 20180720
  29. DEXAMETHASONE SODIUM PHOSPHATE. [Concomitant]
     Active Substance: DEXAMETHASONE SODIUM PHOSPHATE
     Indication: PRODUCT USED FOR UNKNOWN INDICATION
     Dosage: UNK
     Route: 065
     Dates: start: 20180717
  30. HUMAN SERUM ALBUMIN [Concomitant]
     Active Substance: ALBUMIN HUMAN
     Indication: CARDIAC FAILURE ACUTE
     Route: 065
     Dates: start: 20180715, end: 20180721
  31. BETAMETHASONE VALERATE. [Concomitant]
     Active Substance: BETAMETHASONE VALERATE
     Indication: PSORIASIS
     Dosage: UNK
     Route: 065
     Dates: start: 20180509
  32. SOLDEM 1 [Concomitant]
     Active Substance: DEXTROSE\SODIUM CHLORIDE\SODIUM LACTATE
     Dosage: UNK
     Route: 065
     Dates: start: 20180721
  33. HYDROCORTISONE SODIUM SUCCINATE [Concomitant]
     Active Substance: HYDROCORTISONE SODIUM SUCCINATE
     Indication: FEBRILE NEUTROPENIA
     Dosage: UNK
     Route: 065
     Dates: start: 20180711, end: 20180712
  34. HYDROCORTISONE SODIUM SUCCINATE [Concomitant]
     Active Substance: HYDROCORTISONE SODIUM SUCCINATE
     Indication: SEPSIS
     Dosage: UNK
     Route: 065
     Dates: start: 20180723, end: 20180723
  35. CYTARABINE. [Suspect]
     Active Substance: CYTARABINE
     Indication: ACUTE MYELOID LEUKAEMIA
     Dosage: 100 MG/M2, QD
     Route: 042
     Dates: start: 20180508
  36. HEMOPORISON [Concomitant]
     Indication: HAEMORRHOIDS
     Dosage: UNK
     Route: 065
     Dates: start: 20180523
  37. CEFEPIME DIHYDROCHLORIDE [Concomitant]
     Active Substance: CEFEPIME HYDROCHLORIDE
     Indication: FEBRILE NEUTROPENIA
     Dosage: UNK
     Route: 065
     Dates: start: 20180711, end: 20180713
  38. GLUCOSE [Concomitant]
     Active Substance: DEXTROSE
     Indication: NUTRITIONAL SUPPLEMENTATION
     Dosage: UNK
     Route: 065
     Dates: start: 20180715, end: 20180719
  39. ACETAMINOPHEN. [Concomitant]
     Active Substance: ACETAMINOPHEN
     Indication: SEPSIS
     Dosage: UNK
     Route: 065
     Dates: start: 20180717, end: 20180720
  40. DOVOBET [Concomitant]
     Active Substance: BETAMETHASONE\CALCIPOTRIENE
     Indication: PSORIASIS
     Dosage: UNK
     Route: 065
     Dates: start: 20150101
  41. PREDNISOLONE SODIUM SUCCINATE [Concomitant]
     Active Substance: PREDNISOLONE SODIUM SUCCINATE
     Indication: PROPHYLAXIS
     Dosage: UNK
     Route: 065
     Dates: start: 20180629, end: 20180629
  42. NORADRENALINE [Concomitant]
     Active Substance: NOREPINEPHRINE
     Indication: SEPSIS
  43. MIDAZOLAM [Concomitant]
     Active Substance: MIDAZOLAM HYDROCHLORIDE
     Indication: SEDATION
     Dosage: UNK
     Route: 065
     Dates: start: 20180716, end: 20180721
  44. NONTHRON [Concomitant]
     Indication: THERAPEUTIC PROCEDURE
     Dosage: UNK
     Route: 065
     Dates: start: 20180717, end: 20180721
  45. CELECOXIB. [Concomitant]
     Active Substance: CELECOXIB
     Indication: BACK PAIN
     Dosage: UNK
     Route: 065
     Dates: start: 20180712, end: 20180713
  46. OMEPRAZOLE. [Concomitant]
     Active Substance: OMEPRAZOLE
     Dosage: UNK
     Route: 065
     Dates: start: 20180721
  47. VERAPAMIL HYDROCHLORIDE. [Concomitant]
     Active Substance: VERAPAMIL HYDROCHLORIDE
     Dosage: UNK
     Route: 065
     Dates: start: 20180715, end: 20180715
  48. WHITE PETROLATUM [Concomitant]
     Active Substance: PETROLATUM
     Indication: PSORIASIS
     Dosage: UNK
     Route: 065
     Dates: start: 20180120
  49. ISOSORBIDE DINITRATE. [Concomitant]
     Active Substance: ISOSORBIDE DINITRATE
     Indication: CARDIAC FAILURE ACUTE
     Dosage: UNK
     Route: 065
     Dates: start: 20180715, end: 20180716
  50. CGP 41251 [Suspect]
     Active Substance: MIDOSTAURIN
     Indication: ACUTE MYELOID LEUKAEMIA
     Dosage: 50 MG, BID
     Route: 048
     Dates: start: 20180515, end: 20180713
  51. BLINDED NO TREATMENT RECEIVED [Suspect]
     Active Substance: INVESTIGATIONAL PRODUCT
     Indication: ACUTE MYELOID LEUKAEMIA
     Dosage: NO TREATMENT
     Route: 065
  52. BLINDED PLACEBO [Suspect]
     Active Substance: INVESTIGATIONAL PRODUCT
     Indication: ACUTE MYELOID LEUKAEMIA
     Dosage: NO TREATMENT
     Route: 065
  53. AZULENE [Concomitant]
     Active Substance: AZULENE
     Indication: HAEMORRHOIDS
     Dosage: UNK
     Route: 065
     Dates: start: 20180505
  54. AZULENE SODIUM SULFONATE [Concomitant]
     Active Substance: SODIUM DECAHYDROAZULENE-1-SULFONATE
     Indication: STOMATITIS
     Dosage: UNK
     Route: 065
     Dates: start: 20180530, end: 20180715
  55. VANCOMYCIN [Concomitant]
     Active Substance: VANCOMYCIN
     Indication: FEBRILE NEUTROPENIA
     Dosage: UNK
     Route: 065
     Dates: start: 20180529
  56. A-VITAMIN [Concomitant]
     Active Substance: RETINOL
     Indication: PSORIASIS
     Dosage: UNK
     Route: 005
     Dates: start: 20180523
  57. ACETAMINOPHEN. [Concomitant]
     Active Substance: ACETAMINOPHEN
     Indication: FEBRILE NEUTROPENIA
     Dosage: UNK
     Route: 065
     Dates: start: 20180712, end: 20180712
  58. OLOPATADINE HYDROCHLORIDE. [Concomitant]
     Active Substance: OLOPATADINE HYDROCHLORIDE
     Indication: PSORIASIS
     Dosage: UNK
     Route: 065
     Dates: start: 20180120, end: 20180713
  59. VERAPAMIL HYDROCHLORIDE. [Concomitant]
     Active Substance: VERAPAMIL HYDROCHLORIDE
     Dosage: UNK
     Route: 065
     Dates: start: 20180712, end: 20180712
  60. NICARDIPINE HYDROCHLORIDE. [Concomitant]
     Active Substance: NICARDIPINE HYDROCHLORIDE
     Indication: CARDIAC FAILURE ACUTE
     Dosage: UNK
     Route: 065
     Dates: start: 20180723
  61. DAUNORUBICIN [Suspect]
     Active Substance: DAUNORUBICIN
     Indication: ACUTE MYELOID LEUKAEMIA
     Dosage: 50 MG/M2, QD
     Route: 042
     Dates: start: 20180508
  62. SOLYUGEN F [Concomitant]
     Active Substance: CALCIUM CHLORIDE\POTASSIUM CHLORIDE\SODIUM ACETATE\SODIUM CHLORIDE
     Dosage: UNK
     Route: 065
     Dates: start: 20180717, end: 20180718
  63. ZOSYN [Concomitant]
     Active Substance: PIPERACILLIN SODIUM\TAZOBACTAM SODIUM
     Indication: SEPSIS
  64. OMEPRAZOLE. [Concomitant]
     Active Substance: OMEPRAZOLE
     Indication: PROPHYLAXIS AGAINST GASTROINTESTINAL ULCER
     Dosage: UNK
     Route: 065
     Dates: start: 20180715, end: 20180718
  65. BETAMETHASONE BUTYRATE PROPIONATE [Concomitant]
     Active Substance: BETAMETHASONE BUTYRATE PROPIONATE
     Indication: PSORIASIS
     Dosage: UNK
     Route: 065
     Dates: start: 20180120
  66. VERAPAMIL HYDROCHLORIDE. [Concomitant]
     Active Substance: VERAPAMIL HYDROCHLORIDE
     Dosage: UNK
     Route: 065
     Dates: start: 20180703, end: 20180710
  67. DEXCHLORPHENIRAMINE MALEATE. [Concomitant]
     Active Substance: DEXCHLORPHENIRAMINE MALEATE
     Indication: PROPHYLAXIS
     Dosage: UNK
     Route: 065
     Dates: start: 20180706, end: 20180706
  68. DEXCHLORPHENIRAMINE MALEATE. [Concomitant]
     Active Substance: DEXCHLORPHENIRAMINE MALEATE
     Dosage: UNK
     Route: 065
     Dates: start: 20180709, end: 20180709
  69. SOLDEM 1 [Concomitant]
     Active Substance: DEXTROSE\SODIUM CHLORIDE\SODIUM LACTATE
     Indication: SURGERY
     Dosage: UNK
     Route: 065
     Dates: start: 20180627, end: 20180714
  70. PHYSIOLOGICAL SALINE SOLUTION [Concomitant]
     Active Substance: SODIUM CHLORIDE
     Indication: SURGERY
     Dosage: UNK
     Route: 065
     Dates: start: 20180713, end: 20180713
  71. BLINDED CGP 41251 [Suspect]
     Active Substance: MIDOSTAURIN
     Indication: ACUTE MYELOID LEUKAEMIA
     Dosage: NO TREATMENT
     Route: 065
  72. ESOMEPRAZOLE MAGNESIUM. [Concomitant]
     Active Substance: ESOMEPRAZOLE MAGNESIUM
     Indication: PROPHYLAXIS AGAINST GASTROINTESTINAL ULCER
     Dosage: UNK
     Route: 065
     Dates: start: 20180508, end: 20180714
  73. ACETAMINOPHEN. [Concomitant]
     Active Substance: ACETAMINOPHEN
     Indication: DEVICE RELATED INFECTION
     Dosage: UNK
     Route: 065
     Dates: start: 20180711, end: 20180712
  74. VITAMIN A [Concomitant]
     Active Substance: VITAMIN A
     Indication: PSORIASIS
     Dosage: UNK
     Route: 065
     Dates: start: 20180523
  75. FLUOROMETHOLONE. [Concomitant]
     Active Substance: FLUOROMETHOLONE
     Indication: PROPHYLAXIS
     Dosage: UNK
     Route: 065
     Dates: start: 20180628, end: 20180704
  76. MICAFUNGIN SODIUM [Concomitant]
     Active Substance: MICAFUNGIN SODIUM
     Indication: PROPHYLAXIS
     Dosage: UNK
     Route: 065
     Dates: start: 20180713
  77. FENTANYL CITRATE. [Concomitant]
     Active Substance: FENTANYL CITRATE
     Indication: PAIN
     Route: 065
     Dates: start: 20180716, end: 20180723
  78. HYDROXYZINE [Concomitant]
     Active Substance: HYDROXYZINE HYDROCHLORIDE
     Indication: SEDATION
     Dosage: UNK
     Route: 065
     Dates: start: 20180721, end: 20180723
  79. DINOPROST [Concomitant]
     Active Substance: DINOPROST
     Indication: GASTROINTESTINAL MOTILITY DISORDER
     Dosage: UNK
     Route: 065
     Dates: start: 20180721, end: 20180722
  80. LANDIOLOL HYDROCHLORIDE [Concomitant]
     Active Substance: LANDIOLOL HYDROCHLORIDE
     Indication: CARDIAC FAILURE ACUTE
     Dosage: UNK
     Route: 065
     Dates: start: 20180716, end: 20180719
  81. VERAPAMIL HYDROCHLORIDE. [Concomitant]
     Active Substance: VERAPAMIL HYDROCHLORIDE
     Indication: CARDIAC FAILURE ACUTE
     Dosage: UNK
     Route: 065
     Dates: start: 20180702, end: 20180702
  82. DILTIAZEM HYDROCHLORIDE. [Concomitant]
     Active Substance: DILTIAZEM HYDROCHLORIDE
     Indication: CARDIAC FAILURE ACUTE
     Dosage: UNK
     Route: 065
     Dates: start: 20180723
  83. VANCOMYCIN HYDROCHLORIDE. [Concomitant]
     Active Substance: VANCOMYCIN HYDROCHLORIDE
     Indication: SEPSIS

REACTIONS (4)
  - Sepsis [Fatal]
  - Pneumonia [Not Recovered/Not Resolved]
  - Cardiac failure acute [Not Recovered/Not Resolved]
  - Multiple organ dysfunction syndrome [Not Recovered/Not Resolved]

NARRATIVE: CASE EVENT DATE: 20180712
